FAERS Safety Report 18009186 (Version 2)
Quarter: 2020Q3

REPORT INFORMATION
  Report Type: Spontaneous
  Country: US (occurrence: US)
  Receive Date: 20200710
  Receipt Date: 20200925
  Transmission Date: 20201103
  Serious: Yes (Hospitalization, Other)
  Sender: FDA-Public Use
  Company Number: US-SAOL THERAPEUTICS-2020SAO00018

PATIENT
  Age: 37 Year
  Sex: Male

DRUGS (2)
  1. LIORESAL [Suspect]
     Active Substance: BACLOFEN
     Dosage: 860.2 ?G, \DAY
     Route: 037
     Dates: start: 20200116
  2. LIORESAL [Suspect]
     Active Substance: BACLOFEN
     Indication: CEREBRAL PALSY
     Dosage: 844.3 ?G, \DAY (ALSO REPORTED AS 844 ?G/DAY)
     Route: 037
     Dates: end: 20200116

REACTIONS (7)
  - Tachycardia [Recovered/Resolved]
  - Blood creatine phosphokinase increased [Unknown]
  - Unevaluable event [Recovered/Resolved]
  - Urinary tract infection enterococcal [Recovered/Resolved]
  - Drug withdrawal syndrome [Recovered/Resolved]
  - Hyperhidrosis [Recovered/Resolved]
  - Pain [Recovered/Resolved]

NARRATIVE: CASE EVENT DATE: 202001
